FAERS Safety Report 4433658-1 (Version None)
Quarter: 2004Q3

REPORT INFORMATION
  Report Type: 
  Country: None (occurrence: None)
  Receive Date: 20040826
  Receipt Date: 20040514
  Transmission Date: 20050211
  Serious: No
  Sender: FDA-Public Use
  Company Number: US-GLAXOSMITHKLINE-A0510911A

PATIENT
  Age: 72 Year
  Sex: Male

DRUGS (5)
  1. AVODART [Suspect]
     Indication: BENIGN PROSTATIC HYPERPLASIA
     Dosage: .5MG UNKNOWN
     Route: 048
  2. LIPITOR [Concomitant]
  3. NAPROXEN [Concomitant]
  4. METFORMIN HCL [Concomitant]
  5. HUMALOG [Concomitant]

REACTIONS (1)
  - VISION BLURRED [None]
